FAERS Safety Report 18734068 (Version 1)
Quarter: 2021Q1

REPORT INFORMATION
  Report Type: Report from Study
  Country: US (occurrence: US)
  Receive Date: 20210113
  Receipt Date: 20210113
  Transmission Date: 20210419
  Serious: No
  Sender: FDA-Public Use
  Company Number: US-ALNYLAM PHARMACEUTICALS, INC.-ALN-2021-000020

PATIENT

DRUGS (1)
  1. ONPATTRO [Suspect]
     Active Substance: PATISIRAN SODIUM
     Indication: HEREDITARY NEUROPATHIC AMYLOIDOSIS
     Route: 042

REACTIONS (5)
  - Feeling cold [Recovered/Resolved]
  - Pollakiuria [Recovered/Resolved]
  - Abdominal pain lower [Unknown]
  - Dysphonia [Unknown]
  - Paraesthesia [Recovered/Resolved]
